FAERS Safety Report 14185734 (Version 1)
Quarter: 2017Q4

REPORT INFORMATION
  Report Type: Spontaneous
  Country: US (occurrence: None)
  Receive Date: 20171112
  Receipt Date: 20171112
  Transmission Date: 20180321
  Serious: No
  Sender: FDA-Public Use
  Company Number: None

PATIENT
  Age: 84 Year
  Sex: Female

DRUGS (2)
  1. JADENU [Suspect]
     Active Substance: DEFERASIROX
     Indication: MYELOFIBROSIS
     Dosage: 180=90 DS 360MG DAILY MOUTH
     Route: 048
     Dates: start: 20160217, end: 20170929
  2. JAKAFI [Suspect]
     Active Substance: RUXOLITINIB
     Indication: ANAEMIA
     Dosage: 180=90 DS 10MG BID MOUTH
     Route: 048
     Dates: start: 20141110, end: 20170929

REACTIONS (2)
  - Therapy cessation [None]
  - Blood count abnormal [None]

NARRATIVE: CASE EVENT DATE: 20170929
